FAERS Safety Report 4642018-X (Version None)
Quarter: 2005Q2

REPORT INFORMATION
  Report Type: 
  Country: None (occurrence: None)
  Receive Date: 20050420
  Receipt Date: 20050407
  Transmission Date: 20051028
  Serious: Yes (Other)
  Sender: FDA-Public Use
  Company Number: 2005056496

PATIENT
  Age: 30 Year
  Sex: Female

DRUGS (2)
  1. DEPO-PROVERA [Suspect]
     Indication: ILL-DEFINED DISORDER
     Dosage: SEE IMAGE
     Route: 030
     Dates: start: 20041207, end: 20041207
  2. DEPO-PROVERA [Suspect]
     Indication: ILL-DEFINED DISORDER
     Dosage: SEE IMAGE
     Route: 030
     Dates: start: 20050330, end: 20050330

REACTIONS (4)
  - ALTERED VISUAL DEPTH PERCEPTION [None]
  - ANXIETY [None]
  - MOOD SWINGS [None]
  - PANIC ATTACK [None]
